FAERS Safety Report 13162754 (Version 1)
Quarter: 2017Q1

REPORT INFORMATION
  Report Type: Spontaneous
  Country: US (occurrence: US)
  Receive Date: 20170128
  Receipt Date: 20170128
  Transmission Date: 20170428
  Serious: Yes (Hospitalization)
  Sender: FDA-Public Use
  Company Number: None

PATIENT
  Age: 51 Year
  Sex: Male
  Weight: 94.5 kg

DRUGS (1)
  1. AZITHROMYCIN TABLETS USP [Suspect]
     Active Substance: AZITHROMYCIN ANHYDROUS
     Indication: COUGH
     Dosage: ?          OTHER FREQUENCY:Z-PACK DAILY;?
     Route: 048
     Dates: start: 20161221, end: 20170125

REACTIONS (1)
  - Hiccups [None]

NARRATIVE: CASE EVENT DATE: 20161231
